FAERS Safety Report 16665025 (Version 1)
Quarter: 2019Q3

REPORT INFORMATION
  Report Type: Spontaneous
  Country: US (occurrence: US)
  Receive Date: 20190803
  Receipt Date: 20190803
  Transmission Date: 20191004
  Serious: Yes (Other)
  Sender: FDA-Public Use
  Company Number: US-ACCORD-071028

PATIENT
  Age: 54 Year
  Sex: Female
  Weight: 126.1 kg

DRUGS (13)
  1. DOCETAXEL ACCORD [Suspect]
     Active Substance: DOCETAXEL
     Indication: BREAST CANCER
     Dosage: NUMBER OF CYCLES: 06, EVERY THREE WEEKS
     Dates: start: 20151005, end: 20160118
  2. ANASTROZOLE. [Concomitant]
     Active Substance: ANASTROZOLE
     Dates: start: 201606
  3. HERCEPTIN [Concomitant]
     Active Substance: TRASTUZUMAB
  4. ETODOLAC. [Concomitant]
     Active Substance: ETODOLAC
     Dosage: ALSO RECEIVED FROM OCT-2015 TO JAN-2016 AT THE DOSE OF 400 MG
     Dates: start: 20120101
  5. PARAPLATIN [Suspect]
     Active Substance: CARBOPLATIN
     Indication: BREAST CANCER
     Dosage: NUMBER OF CYCLES: 06? EVERY THREE WEEKS
     Dates: start: 20151005, end: 20160118
  6. FLUTICASONE. [Concomitant]
     Active Substance: FLUTICASONE
     Dosage: ALSO RECEIVED FROM 2014 AT THE DOSE OF 50 MCG
     Dates: start: 20120101
  7. MINOXIDIL. [Concomitant]
     Active Substance: MINOXIDIL
     Dates: start: 20080101
  8. SYNTHROID [Concomitant]
     Active Substance: LEVOTHYROXINE SODIUM
  9. LIDOCAINE. [Concomitant]
     Active Substance: LIDOCAINE
     Dosage: ALSO RECEIVED FROM 09-DEC-2014 TO 18-JAN-2015
     Dates: start: 20120101
  10. BIOTIN [Concomitant]
     Active Substance: BIOTIN
     Dates: start: 20080101
  11. ATENOLOL/ATENOLOL HYDROCHLORIDE [Concomitant]
     Dosage: STRENGTH: 50 MG
     Dates: start: 2010
  12. MELOXICAM. [Concomitant]
     Active Substance: MELOXICAM
     Route: 048
     Dates: start: 20140320
  13. LEVOTHYROXINE. [Concomitant]
     Active Substance: LEVOTHYROXINE
     Dates: start: 1999

REACTIONS (1)
  - Alopecia [Not Recovered/Not Resolved]

NARRATIVE: CASE EVENT DATE: 201607
